FAERS Safety Report 7396601-1 (Version None)
Quarter: 2011Q1

REPORT INFORMATION
  Report Type: 
  Country: None (occurrence: None)
  Receive Date: 20110328
  Receipt Date: 20110316
  Transmission Date: 20110831
  Serious: Yes (Hospitalization)
  Sender: FDA-Public Use
  Company Number: 1000019413

PATIENT
  Age: 39 Year
  Sex: Female
  Weight: 55 kg

DRUGS (3)
  1. ESCITALOPRAM OXALATE [Suspect]
     Indication: DEPRESSION
     Dosage: 10 MG (10 MG, 1 IN 1 D), ORAL
     Route: 048
     Dates: start: 20081001
  2. TRYPTOPHAN (TRYPTOPHAN, L-) (TABLETS) [Suspect]
     Indication: DEPRESSION
     Dosage: 500 MG (500 MG, 1 IN 1 D), ORAL
     Route: 048
     Dates: start: 20080228, end: 20110303
  3. TRYPTOPHAN (TRYPTOPHAN, L-) (TABLETS) [Suspect]
     Indication: INSOMNIA
     Dosage: 500 MG (500 MG, 1 IN 1 D), ORAL
     Route: 048
     Dates: start: 20080228, end: 20110303

REACTIONS (3)
  - EOSINOPHILIA MYALGIA SYNDROME [None]
  - DRUG INTERACTION [None]
  - PYREXIA [None]
